FAERS Safety Report 15280420 (Version 1)
Quarter: 2018Q3

REPORT INFORMATION
  Report Type: Spontaneous
  Country: US (occurrence: US)
  Receive Date: 20180815
  Receipt Date: 20180815
  Transmission Date: 20181010
  Serious: Yes (Other)
  Sender: FDA-Public Use
  Company Number: US-GLAXOSMITHKLINE-US2018143557

PATIENT
  Sex: Female

DRUGS (1)
  1. BENLYSTA [Suspect]
     Active Substance: BELIMUMAB
     Indication: PRODUCT USED FOR UNKNOWN INDICATION
     Dosage: 200 MG, CYC
     Route: 058

REACTIONS (9)
  - Cerebrovascular accident [Unknown]
  - Musculoskeletal stiffness [Unknown]
  - Dysarthria [Unknown]
  - Injection site exfoliation [Unknown]
  - Pain [Unknown]
  - Injection site bruising [Unknown]
  - Injection site erythema [Unknown]
  - Hemiparesis [Unknown]
  - Feeling abnormal [Unknown]
